FAERS Safety Report 13640596 (Version 2)
Quarter: 2017Q3

REPORT INFORMATION
  Report Type: Spontaneous
  Country: US (occurrence: US)
  Receive Date: 20170611
  Receipt Date: 20170714
  Transmission Date: 20171127
  Serious: Yes (Other)
  Sender: FDA-Public Use
  Company Number: PHEH2017US017216

PATIENT
  Sex: Female

DRUGS (3)
  1. GLEEVEC [Suspect]
     Active Substance: IMATINIB MESYLATE
     Dosage: 400 MG, UNK
     Route: 065
  2. GLEEVEC [Suspect]
     Active Substance: IMATINIB MESYLATE
     Indication: PRODUCT USED FOR UNKNOWN INDICATION
     Dosage: 400 MG, UNK
     Route: 065
     Dates: start: 2003
  3. GLEEVEC [Suspect]
     Active Substance: IMATINIB MESYLATE
     Dosage: REDUCED DOSE
     Route: 065

REACTIONS (7)
  - Bone pain [Unknown]
  - Disease recurrence [Recovering/Resolving]
  - Malaise [Unknown]
  - Muscle spasms [Unknown]
  - Nausea [Unknown]
  - Fatigue [Unknown]
  - Vomiting [Unknown]
